FAERS Safety Report 4919812-0 (Version None)
Quarter: 2006Q1

REPORT INFORMATION
  Report Type: 
  Country: None (occurrence: None)
  Receive Date: 20060217
  Receipt Date: 20060202
  Transmission Date: 20060701
  Serious: Yes (Life-Threatening)
  Sender: FDA-Public Use
  Company Number: DSA_27717_2006

PATIENT
  Age: 88 Year
  Sex: Male

DRUGS (5)
  1. VASOTEC RPD [Suspect]
     Indication: ESSENTIAL HYPERTENSION
     Dosage: 5 MG Q DAY PO
     Route: 048
     Dates: start: 20050101
  2. SOTALOL HCL [Suspect]
     Indication: ARRHYTHMIA
     Dosage: 60 MG Q DAY PO
     Route: 048
     Dates: start: 20050101, end: 20051217
  3. ALFUZOSIN HYDROCHLORIDE [Concomitant]
  4. CASODEX [Concomitant]
  5. TICLOPIDINE HYDROCHLORIDE [Concomitant]

REACTIONS (2)
  - ATRIOVENTRICULAR BLOCK SECOND DEGREE [None]
  - SYNCOPE [None]
